FAERS Safety Report 14351088 (Version 1)
Quarter: 2018Q1

REPORT INFORMATION
  Report Type: Spontaneous
  Country: US (occurrence: US)
  Receive Date: 20180103
  Receipt Date: 20180103
  Transmission Date: 20180509
  Serious: Yes (Other)
  Sender: FDA-Public Use
  Company Number: None

PATIENT
  Age: 39 Year
  Sex: Female
  Weight: 80.29 kg

DRUGS (2)
  1. GENERIC LEVOTHYROXINE [Suspect]
     Active Substance: LEVOTHYROXINE
     Indication: POST PROCEDURAL HYPOTHYROIDISM
     Route: 048
  2. GENERIC LEVOTHYROXINE [Suspect]
     Active Substance: LEVOTHYROXINE
     Indication: THYROID CANCER
     Route: 048

REACTIONS (2)
  - Product substitution issue [None]
  - Insurance issue [None]

NARRATIVE: CASE EVENT DATE: 20160518
